FAERS Safety Report 8590239-6 (Version None)
Quarter: 2012Q3

REPORT INFORMATION
  Report Type: 
  Country: None (occurrence: None)
  Receive Date: 20120813
  Receipt Date: 20120807
  Transmission Date: 20120928
  Serious: Yes (Death)
  Sender: FDA-Public Use
  Company Number: US-BRISTOL-MYERS SQUIBB COMPANY-16827958

PATIENT

DRUGS (1)
  1. YERVOY [Suspect]
     Dosage: STRENGTH:50MG/10ML AND 200MG/40ML(00003-2328-22),EXP:JUN2014

REACTIONS (1)
  - DEATH [None]
